FAERS Safety Report 16723990 (Version 4)
Quarter: 2019Q4

REPORT INFORMATION
  Report Type: Report from Study
  Country: US (occurrence: US)
  Receive Date: 20190821
  Receipt Date: 20191017
  Transmission Date: 20200122
  Serious: Yes (Other)
  Sender: FDA-Public Use
  Company Number: PHEH2019US034679

PATIENT
  Age: 60 Year
  Sex: Female
  Weight: 41 kg

DRUGS (3)
  1. ENTRESTO [Suspect]
     Active Substance: SACUBITRIL\VALSARTAN
     Indication: CARDIAC FAILURE
     Dosage: 1 DF (24 MG OF SACUBITRIL AND 26 MG OF VALSARTAN), UNK
     Route: 048
  2. ENTRESTO [Suspect]
     Active Substance: SACUBITRIL\VALSARTAN
     Indication: CARDIAC FAILURE CONGESTIVE
     Dosage: 1 DF (49 MG OF SACUBITRIL AND 51 MG OF VALSARTAN), UNK
     Route: 048
     Dates: start: 201901
  3. ENTRESTO [Suspect]
     Active Substance: SACUBITRIL\VALSARTAN
     Dosage: 1 DF (24 MG OF SACUBITRIL AND 26 MG OF VALSARTAN), UNK
     Route: 048

REACTIONS (4)
  - Presyncope [Recovered/Resolved]
  - Myocardial infarction [Unknown]
  - Dizziness [Unknown]
  - Loss of consciousness [Unknown]

NARRATIVE: CASE EVENT DATE: 201902
